FAERS Safety Report 7818043-4 (Version None)
Quarter: 2011Q4

REPORT INFORMATION
  Report Type: 
  Country: None (occurrence: None)
  Receive Date: 20111017
  Receipt Date: 20111004
  Transmission Date: 20120403
  Serious: Yes (Hospitalization)
  Sender: FDA-Public Use
  Company Number: US-VIROPHARMA INCORPORATED-20111004CINRY2345

PATIENT
  Sex: Male

DRUGS (1)
  1. CINRYZE [Suspect]
     Indication: HEREDITARY ANGIOEDEMA
     Dates: start: 20110909

REACTIONS (4)
  - HISTOPLASMOSIS [None]
  - HEREDITARY ANGIOEDEMA [None]
  - OFF LABEL USE [None]
  - LUNG INFECTION [None]
